FAERS Safety Report 8833247 (Version 1)
Quarter: 2012Q4

REPORT INFORMATION
  Report Type: Report from Study
  Country: PL (occurrence: PL)
  Receive Date: 20121010
  Receipt Date: 20121010
  Transmission Date: 20130627
  Serious: No
  Sender: FDA-Public Use
  Company Number: PHHY2012PL089199

PATIENT

DRUGS (4)
  1. AMN107 [Suspect]
  2. OMEPRAZOLE [Concomitant]
  3. AMLODIPINE [Concomitant]
  4. LAMSOLUZYNA [Concomitant]

REACTIONS (4)
  - Alanine aminotransferase increased [Not Recovered/Not Resolved]
  - Aspartate aminotransferase increased [Not Recovered/Not Resolved]
  - Blood creatinine increased [Not Recovered/Not Resolved]
  - Blood bilirubin increased [Not Recovered/Not Resolved]
